FAERS Safety Report 8601684 (Version 4)
Quarter: 2012Q4

REPORT INFORMATION
  Report Type: 
  Country: US (occurrence: US)
  Receive Date: 20120606
  Receipt Date: 20120905
  Transmission Date: 20130627
  Serious: Yes (Hospitalization)
  Sender: FDA-Public Use
  Company Number: US-ACTELION-A-NJ2012-66413

PATIENT
  Age: 69 Year
  Sex: Female

DRUGS (3)
  1. TRACLEER [Suspect]
     Indication: PULMONARY ARTERIAL HYPERTENSION
     Dosage: UNK
     Route: 048
  2. ASPIRIN [Concomitant]
  3. COUMADIN [Concomitant]

REACTIONS (10)
  - Pulmonary oedema [Unknown]
  - Palpitations [Unknown]
  - Dyspnoea [Unknown]
  - Atrial fibrillation [Recovering/Resolving]
  - Fall [Recovering/Resolving]
  - Tachycardia [Recovering/Resolving]
  - Dizziness [Recovering/Resolving]
  - Dyspnoea exertional [Recovering/Resolving]
  - Feeling hot [Unknown]
  - Chest pain [Unknown]
